FAERS Safety Report 6831007-2 (Version None)
Quarter: 2010Q3

REPORT INFORMATION
  Report Type: 
  Country: None (occurrence: None)
  Receive Date: 20100712
  Receipt Date: 20070120
  Transmission Date: 20110219
  Serious: No
  Sender: FDA-Public Use
  Company Number: US-PFIZER INC-2007006390

PATIENT
  Sex: Female
  Weight: 58.06 kg

DRUGS (5)
  1. CHANTIX [Suspect]
     Indication: SMOKING CESSATION THERAPY
     Dosage: TWO A DAY
     Dates: start: 20070101
  2. HYZAAR [Concomitant]
     Indication: HYPERTENSION
  3. NORVASC [Concomitant]
     Indication: HYPERTENSION
  4. PREMPRO [Concomitant]
  5. LEVOXYL [Concomitant]
     Indication: THYROID DISORDER

REACTIONS (5)
  - DECREASED APPETITE [None]
  - HOT FLUSH [None]
  - MALAISE [None]
  - NASOPHARYNGITIS [None]
  - NAUSEA [None]
